FAERS Safety Report 22177307 (Version 1)
Quarter: 2023Q2

REPORT INFORMATION
  Report Type: Report from Study
  Country: CO (occurrence: CO)
  Receive Date: 20230405
  Receipt Date: 20230405
  Transmission Date: 20230721
  Serious: Yes (Other)
  Sender: FDA-Public Use
  Company Number: CO-AMGEN-COLSL2023054893

PATIENT
  Age: 55 Year
  Sex: Female

DRUGS (2)
  1. ADALIMUMAB [Suspect]
     Active Substance: ADALIMUMAB
     Indication: Rheumatoid arthritis
     Dosage: UNK, Q2WK
     Route: 058
     Dates: start: 202207, end: 202209
  2. ADALIMUMAB [Suspect]
     Active Substance: ADALIMUMAB
     Dosage: UNK, Q2WK
     Route: 058
     Dates: start: 20230301

REACTIONS (2)
  - Haematoma [Recovered/Resolved]
  - Hypersensitivity [Recovering/Resolving]

NARRATIVE: CASE EVENT DATE: 20230305
